FAERS Safety Report 12615410 (Version 1)
Quarter: 2016Q3

REPORT INFORMATION
  Report Type: Not Available
  Country: None (occurrence: US)
  Receive Date: 20160802
  Receipt Date: 20160802
  Transmission Date: 20161109
  Serious: No
  Sender: FDA-Public Use
  Company Number: US-AKORN-34790

PATIENT
  Sex: Female

DRUGS (1)
  1. ATROPINE SULFATE OPHTHALMIC SOLUTION 1%, USP [Suspect]
     Active Substance: ATROPINE SULFATE

REACTIONS (1)
  - Drug ineffective [Unknown]
